FAERS Safety Report 16056756 (Version 1)
Quarter: 2019Q1

REPORT INFORMATION
  Report Type: Spontaneous
  Country: US (occurrence: US)
  Receive Date: 20190310
  Receipt Date: 20190310
  Transmission Date: 20190418
  Serious: Yes (Other)
  Sender: FDA-Public Use
  Company Number: None

PATIENT
  Age: 47 Year
  Sex: Male
  Weight: 132.75 kg

DRUGS (1)
  1. DG HEALTH NASAL [Suspect]
     Active Substance: OXYMETAZOLINE HYDROCHLORIDE
     Indication: NASAL CONGESTION
     Dosage: ?          QUANTITY:30 SPRAY(S);?
     Route: 045
     Dates: start: 20190310, end: 20190310

REACTIONS (5)
  - Burning sensation [None]
  - Pyrexia [None]
  - Lacrimation increased [None]
  - Pain [None]
  - Discomfort [None]

NARRATIVE: CASE EVENT DATE: 20190310
